FAERS Safety Report 4376663-6 (Version None)
Quarter: 2004Q2

REPORT INFORMATION
  Report Type: 
  Country: None (occurrence: None)
  Receive Date: 20040608
  Receipt Date: 20040524
  Transmission Date: 20050107
  Serious: Yes (Hospitalization)
  Sender: FDA-Public Use
  Company Number: 195919

PATIENT
  Age: 46 Year
  Sex: Female
  Weight: 92.9874 kg

DRUGS (12)
  1. AVONEX [Suspect]
     Indication: MULTIPLE SCLEROSIS
     Dosage: 30 MCG QW IM
     Route: 030
     Dates: start: 20040201
  2. LEXAPRO [Concomitant]
  3. ZESTRIL [Concomitant]
  4. TIZANIDINE HCL [Concomitant]
  5. ROXICET [Concomitant]
  6. CLONIDINE HCL [Concomitant]
  7. METHADONE HCL [Concomitant]
  8. DIAZEPAM [Concomitant]
  9. DESIPRAMINE HCL [Concomitant]
  10. HYDROCHLOROTHIAZIDE [Concomitant]
  11. CARBAMAZEPINE [Concomitant]
  12. NICODERM [Concomitant]

REACTIONS (3)
  - JOINT DISLOCATION [None]
  - JOINT SWELLING [None]
  - POST PROCEDURAL COMPLICATION [None]
